FAERS Safety Report 8792604 (Version 2)
Quarter: 2013Q4

REPORT INFORMATION
  Report Type: Spontaneous
  Country: US (occurrence: US)
  Receive Date: 20120918
  Receipt Date: 20131101
  Transmission Date: 20140711
  Serious: No
  Sender: FDA-Public Use
  Company Number: US-009507513-1209USA001778

PATIENT
  Age: 20 Year
  Sex: Male

DRUGS (1)
  1. INVANZ [Suspect]
     Indication: KLEBSIELLA INFECTION

REACTIONS (2)
  - Drug resistance [Not Recovered/Not Resolved]
  - Drug resistance [Not Recovered/Not Resolved]
